FAERS Safety Report 20584690 (Version 13)
Quarter: 2024Q1

REPORT INFORMATION
  Report Type: Spontaneous
  Country: US (occurrence: US)
  Receive Date: 20220311
  Receipt Date: 20240111
  Transmission Date: 20240410
  Serious: Yes (Hospitalization, Other)
  Sender: FDA-Public Use
  Company Number: US-PFIZER INC-202200250091

PATIENT
  Age: 51 Year
  Sex: Female
  Weight: 79.365 kg

DRUGS (10)
  1. BRAFTOVI [Suspect]
     Active Substance: ENCORAFENIB
     Indication: Metastatic malignant melanoma
     Dosage: 300 MG, DAILY
     Route: 048
     Dates: start: 201904
  2. BRAFTOVI [Suspect]
     Active Substance: ENCORAFENIB
     Dosage: 75 MG X 3
     Dates: start: 201906
  3. BRAFTOVI [Suspect]
     Active Substance: ENCORAFENIB
     Dosage: SOMETIMES ITS 3 TABLETS, A DAY - SOMETIMES ITS 4, OR 5, OR 6 DAILY
  4. BRAFTOVI [Suspect]
     Active Substance: ENCORAFENIB
     Dosage: 3 TABLETS IN THE MORNING
     Route: 048
  5. MEKTOVI [Suspect]
     Active Substance: BINIMETINIB
     Indication: Metastatic malignant melanoma
     Dosage: 45 MG, 1X/DAY
     Dates: start: 201904
  6. MEKTOVI [Suspect]
     Active Substance: BINIMETINIB
     Dosage: 30 MG Q (EVERY) AM, 15 MG Q (EVERY) PM
     Route: 048
  7. MEKTOVI [Suspect]
     Active Substance: BINIMETINIB
     Dosage: 15 MG X 4; (2) 2 X A DAY
     Dates: start: 201906
  8. MEKTOVI [Suspect]
     Active Substance: BINIMETINIB
     Dosage: 75 MG
  9. MEKTOVI [Suspect]
     Active Substance: BINIMETINIB
     Dosage: TAKE 30MG EVERY MORNING AND 15MG EVERY EVENING
     Route: 048
  10. LEXAPRO [Concomitant]
     Active Substance: ESCITALOPRAM OXALATE
     Indication: Mental disorder

REACTIONS (12)
  - Malaise [Not Recovered/Not Resolved]
  - Suicidal ideation [Recovering/Resolving]
  - Off label use [Unknown]
  - Neoplasm progression [Not Recovered/Not Resolved]
  - Fatigue [Not Recovered/Not Resolved]
  - Vomiting [Not Recovered/Not Resolved]
  - Nausea [Unknown]
  - Visual impairment [Recovered/Resolved]
  - Joint swelling [Recovered/Resolved]
  - Restless legs syndrome [Not Recovered/Not Resolved]
  - Poor quality sleep [Recovered/Resolved]
  - Depression [Unknown]

NARRATIVE: CASE EVENT DATE: 20210101
